FAERS Safety Report 7320076-1 (Version None)
Quarter: 2011Q1

REPORT INFORMATION
  Report Type: 
  Country: None (occurrence: None)
  Receive Date: 20110228
  Receipt Date: 20110228
  Transmission Date: 20110831
  Serious: Yes (Hospitalization)
  Sender: FDA-Public Use
  Company Number: DE-ELI_LILLY_AND_COMPANY-DE201007002035

PATIENT
  Sex: Male
  Weight: 88 kg

DRUGS (19)
  1. OTHER PHARMA COMPANY INV DRUG [Suspect]
     Indication: NON-SMALL CELL LUNG CANCER
     Dosage: 800 MG, TWO IN THREE WEEKS
     Route: 042
     Dates: start: 20100528
  2. OXAZEPAM [Concomitant]
     Indication: INSOMNIA
     Dosage: 10 MG, UNK
     Dates: start: 20100503
  3. OXYGESIC [Concomitant]
     Indication: PAIN
     Dosage: 10 MG, AS NEEDED
     Dates: start: 20100503, end: 20100503
  4. PEMETREXED [Suspect]
     Indication: NON-SMALL CELL LUNG CANCER
     Dosage: 1000 MG, ONE IN THREE WEEKS
     Route: 042
     Dates: start: 20100528
  5. PEMETREXED [Suspect]
     Dosage: UNK, ONE IN THREE WEEKS
     Route: 042
     Dates: start: 20100713
  6. CISPLATIN [Suspect]
     Indication: NON-SMALL CELL LUNG CANCER
     Dosage: 150 MG, ONE IN THREE WEEKS
     Route: 042
     Dates: start: 20100528
  7. VITAMIN B-12 [Concomitant]
     Indication: PROPHYLAXIS
     Dates: start: 20100520
  8. ERYDERMEC [Concomitant]
     Indication: RASH
     Dosage: UNK, UNKNOWN
     Dates: start: 20100606, end: 20100617
  9. MAGNESIUM VERLA /00648601/ [Concomitant]
     Indication: PROPHYLAXIS
     Dosage: UNK, UNKNOWN
     Dates: start: 20100617
  10. VOLTAREN [Concomitant]
     Indication: PAIN
     Dosage: UNK, UNK
     Dates: start: 20100518, end: 20100527
  11. CLEXANE [Concomitant]
     Indication: PROPHYLAXIS
     Dosage: 0.5 ML, 2/D
     Route: 058
     Dates: start: 20100503
  12. TRAMAL [Concomitant]
     Indication: PAIN
     Dosage: 100, UNK
     Dates: start: 20100518
  13. TRANXILIUM [Concomitant]
     Indication: PREMEDICATION
     Dosage: 20 MG, UNK
     Dates: start: 20100504, end: 20100505
  14. OTHER PHARMA COMPANY INV DRUG [Suspect]
     Dosage: UNK, TWO IN THREE WEEKS
     Route: 042
     Dates: start: 20100713
  15. NEXIUM [Concomitant]
     Indication: PROPHYLAXIS
     Dosage: UNK, UNKNOWN
     Dates: start: 20100503
  16. NOVALGIN /06276704/ [Concomitant]
     Indication: PAIN
     Dosage: 500 MG, UNK
     Dates: start: 20100518, end: 20100527
  17. CLEXANE [Concomitant]
     Dates: start: 20100701
  18. CISPLATIN [Suspect]
     Dosage: UNK, ONE IN THREE WEEKS
     Route: 042
     Dates: start: 20100713
  19. FOLSAN [Concomitant]
     Indication: PROPHYLAXIS
     Dosage: UNK, UNKNOWN
     Dates: start: 20100520

REACTIONS (10)
  - GOITRE [None]
  - PLATELET COUNT DECREASED [None]
  - MEAN CELL HAEMOGLOBIN DECREASED [None]
  - PULMONARY EMBOLISM [None]
  - HAEMOGLOBIN DECREASED [None]
  - BLOOD GLUCOSE INCREASED [None]
  - LYMPHOCYTE PERCENTAGE DECREASED [None]
  - PROTHROMBIN TIME SHORTENED [None]
  - PROTEIN TOTAL DECREASED [None]
  - WHITE BLOOD CELLS URINE POSITIVE [None]
